FAERS Safety Report 9353264 (Version 1)
Quarter: 2013Q2

REPORT INFORMATION
  Report Type: Spontaneous
  Country: US (occurrence: US)
  Receive Date: 20130618
  Receipt Date: 20130618
  Transmission Date: 20140414
  Serious: No
  Sender: FDA-Public Use
  Company Number: US-PFIZER INC-2013178529

PATIENT
  Age: 45 Year
  Sex: Female
  Weight: 95 kg

DRUGS (4)
  1. CYTOMEL [Suspect]
     Dosage: 10 UG, 2X/DAY
  2. SYNTHROID [Suspect]
     Indication: BASEDOW^S DISEASE
     Dosage: 75 UG, 1X/DAY
     Dates: start: 2003
  3. METFORMIN [Concomitant]
     Dosage: UNK
  4. LOVAZA [Concomitant]
     Dosage: UNK

REACTIONS (3)
  - Drug dose omission [Unknown]
  - Sluggishness [Unknown]
  - Fatigue [Unknown]
